FAERS Safety Report 19297538 (Version 1)
Quarter: 2021Q2

REPORT INFORMATION
  Report Type: Spontaneous
  Country: CN (occurrence: CN)
  Receive Date: 20210524
  Receipt Date: 20210524
  Transmission Date: 20210717
  Serious: Yes (Other)
  Sender: FDA-Public Use
  Company Number: CN-ROCHE-2835059

PATIENT
  Age: 71 Year
  Sex: Male

DRUGS (9)
  1. TRASTUZUMAB. [Suspect]
     Active Substance: TRASTUZUMAB
     Route: 065
     Dates: start: 201903, end: 201907
  2. TRASTUZUMAB. [Suspect]
     Active Substance: TRASTUZUMAB
     Route: 065
     Dates: start: 201907, end: 202007
  3. OXALIPLATIN. [Concomitant]
     Active Substance: OXALIPLATIN
     Dosage: DAY1, FOR 3 CYCLES
     Route: 041
     Dates: start: 201802, end: 20180327
  4. TRASTUZUMAB. [Suspect]
     Active Substance: TRASTUZUMAB
     Route: 065
     Dates: start: 202008
  5. FLUOROURACIL. [Concomitant]
     Active Substance: FLUOROURACIL
     Indication: HER2 POSITIVE GASTRIC CANCER
     Dosage: DAY1?3, FOR 4 CYCLES
     Dates: start: 20171019, end: 20171104
  6. TRASTUZUMAB. [Suspect]
     Active Substance: TRASTUZUMAB
     Indication: HER2 POSITIVE GASTRIC CANCER
     Route: 065
     Dates: start: 201804, end: 201902
  7. TRASTUZUMAB. [Suspect]
     Active Substance: TRASTUZUMAB
     Route: 065
     Dates: start: 20190307
  8. OXALIPLATIN. [Concomitant]
     Active Substance: OXALIPLATIN
     Indication: HER2 POSITIVE GASTRIC CANCER
     Dosage: DAY1, FOR 4 CYCLES
     Dates: start: 20171019, end: 20171104
  9. CAPECITABINE. [Suspect]
     Active Substance: CAPECITABINE
     Indication: HER2 POSITIVE GASTRIC CANCER
     Dosage: DAY1?14, FOR 3 CYCLES
     Route: 048
     Dates: start: 201802

REACTIONS (1)
  - Myelosuppression [Not Recovered/Not Resolved]
